FAERS Safety Report 12963549 (Version 1)
Quarter: 2016Q4

REPORT INFORMATION
  Report Type: Spontaneous
  Country: IT (occurrence: IT)
  Receive Date: 20161122
  Receipt Date: 20161122
  Transmission Date: 20170207
  Serious: Yes (Other)
  Sender: FDA-Public Use
  Company Number: IT-SCIEGEN PHARMACEUTICALS INC-2016SCILIT00551

PATIENT
  Age: 68 Year
  Sex: Male

DRUGS (7)
  1. GABAPENTIN CAPSULES [Suspect]
     Active Substance: GABAPENTIN
     Indication: PAIN
     Dosage: 300 MG, QD
     Route: 048
  2. CODEINE [Concomitant]
     Active Substance: CODEINE
     Indication: PAIN
     Dosage: 30 MG, QD
     Route: 065
  3. VORICONAZOLE. [Suspect]
     Active Substance: VORICONAZOLE
     Indication: EYE INFECTION FUNGAL
     Dosage: 6 MG/KG EVERY TWELVE HOURS
     Route: 042
  4. VORICONAZOLE. [Suspect]
     Active Substance: VORICONAZOLE
     Dosage: 4 MG/KG EVERY 12 HOURS FOR 10 DAYS
     Route: 042
  5. ACETAMINOPHEN. [Concomitant]
     Active Substance: ACETAMINOPHEN
     Indication: PAIN
     Dosage: 500 MG, UNK
     Route: 065
  6. VORICONAZOLE. [Suspect]
     Active Substance: VORICONAZOLE
     Dosage: 200 MG EVERY 12 HOURS
     Route: 048
  7. PARACETAMOL [Concomitant]
     Active Substance: ACETAMINOPHEN
     Indication: PRODUCT USED FOR UNKNOWN INDICATION
     Dosage: UNK
     Route: 065

REACTIONS (9)
  - Posture abnormal [Unknown]
  - Hallucination, visual [Unknown]
  - Cytology abnormal [Unknown]
  - Toxicity to various agents [Unknown]
  - Apraxia [Unknown]
  - Ataxia [Unknown]
  - Cataract [Not Recovered/Not Resolved]
  - Atrophy of globe [Not Recovered/Not Resolved]
  - Optic nerve disorder [Unknown]
